FAERS Safety Report 19799390 (Version 2)
Quarter: 2021Q3

REPORT INFORMATION
  Report Type: Report from Study
  Country: US (occurrence: US)
  Receive Date: 20210907
  Receipt Date: 20210916
  Transmission Date: 20211014
  Serious: Yes (Death)
  Sender: FDA-Public Use
  Company Number: US-TAIHO ONCOLOGY  INC-EU-2021-02820

PATIENT
  Age: 52 Year
  Sex: Female

DRUGS (12)
  1. POTASSIUM CHLORIDE ER [Concomitant]
     Active Substance: POTASSIUM CHLORIDE
  2. POTASSIUM [Concomitant]
     Active Substance: POTASSIUM
     Dosage: 595 (99) MG
  3. CEFUROXIME. [Concomitant]
     Active Substance: CEFUROXIME
  4. LISINOPRIL. [Concomitant]
     Active Substance: LISINOPRIL
  5. CIPROFLOXACIN. [Concomitant]
     Active Substance: CIPROFLOXACIN
  6. OXYCODONE [Concomitant]
     Active Substance: OXYCODONE
  7. LONSURF [Suspect]
     Active Substance: TIPIRACIL HYDROCHLORIDE\TRIFLURIDINE
     Indication: COLORECTAL CANCER METASTATIC
     Dosage: CYCLE UNKNOWN
     Route: 048
     Dates: start: 20210326, end: 20210820
  8. LONSURF [Suspect]
     Active Substance: TIPIRACIL HYDROCHLORIDE\TRIFLURIDINE
     Indication: COLON CANCER
  9. VITAMIN D [Concomitant]
     Active Substance: VITAMIN D NOS
     Dosage: 400 (10 MCG)
  10. SPIRONOLACTONE. [Concomitant]
     Active Substance: SPIRONOLACTONE
  11. LONSURF [Suspect]
     Active Substance: TIPIRACIL HYDROCHLORIDE\TRIFLURIDINE
     Indication: COLON CANCER
  12. HYDROCODONE BITARTRATE AND ACETAMINOPHEN [Concomitant]
     Active Substance: ACETAMINOPHEN\HYDROCODONE BITARTRATE

REACTIONS (1)
  - Disease progression [Fatal]

NARRATIVE: CASE EVENT DATE: 20210820
